FAERS Safety Report 7618524 (Version 4)
Quarter: 2015Q1

REPORT INFORMATION
  Report Type: Spontaneous
  Country: US (occurrence: US)
  Receive Date: 20101006
  Receipt Date: 20150116
  Transmission Date: 20150721
  Serious: Yes (Hospitalization)
  Sender: FDA-Public Use
  Company Number: US-BAYER-201035414NA

PATIENT
  Age: 24 Year
  Sex: Female
  Weight: 95 kg

DRUGS (3)
  1. YASMIN [Suspect]
     Active Substance: DROSPIRENONE\ETHINYL ESTRADIOL
     Indication: CONTRACEPTION
     Dosage: UNK
     Route: 048
     Dates: start: 20050321, end: 20070820
  2. KLONOPIN [Concomitant]
     Active Substance: CLONAZEPAM
     Indication: PANIC ATTACK
     Dosage: 2 MG, BID
     Route: 048
     Dates: start: 2005, end: 2009
  3. TRAZODONE [Concomitant]
     Active Substance: TRAZODONE HYDROCHLORIDE
     Indication: ANTIDEPRESSANT THERAPY
     Dosage: 150 MG, UNK
     Route: 048

REACTIONS (9)
  - Injury [None]
  - Nausea [Recovered/Resolved]
  - Pain [Recovered/Resolved]
  - Cerebrovascular accident [None]
  - Acute myocardial infarction [Recovered/Resolved]
  - Anxiety [None]
  - Stress [None]
  - Coronary artery thrombosis [None]
  - Chest discomfort [Recovered/Resolved]

NARRATIVE: CASE EVENT DATE: 20070820
